FAERS Safety Report 9869404 (Version 3)
Quarter: 2014Q1

REPORT INFORMATION
  Report Type: Report from Study
  Country: CO (occurrence: CO)
  Receive Date: 20140205
  Receipt Date: 20140220
  Transmission Date: 20141002
  Serious: Yes (Hospitalization)
  Sender: FDA-Public Use
  Company Number: CO-TEVA-460532USA

PATIENT
  Age: 58 Year
  Sex: Female
  Weight: 56 kg

DRUGS (10)
  1. BENDAMUSTINE [Suspect]
     Indication: CHRONIC LYMPHOCYTIC LEUKAEMIA
     Dosage: CYCLIC
     Route: 042
     Dates: start: 20130813, end: 20131024
  2. RITUXIMAB [Suspect]
     Indication: CHRONIC LYMPHOCYTIC LEUKAEMIA
     Dosage: CYCLIC
     Route: 042
     Dates: start: 20130812, end: 20131023
  3. PLACEBO [Suspect]
     Indication: CHRONIC LYMPHOCYTIC LEUKAEMIA
     Route: 048
     Dates: start: 20130813, end: 20131115
  4. POTASSIUM CHLORIDE [Concomitant]
     Indication: HYPOKALAEMIA
     Route: 042
     Dates: start: 20140121
  5. ENOXAPARIN [Concomitant]
     Route: 058
     Dates: start: 20140121
  6. TRAMADOL [Concomitant]
     Route: 042
  7. DIPIRONA [Concomitant]
     Route: 042
     Dates: start: 20140121
  8. PREGABALIN [Concomitant]
     Indication: NEURALGIA
     Route: 065
     Dates: start: 20140121
  9. PREDNISOLONE [Concomitant]
     Indication: EYE INFLAMMATION
     Dosage: 1 DRAM IN 4 HOUR; UNKNOWN/D
     Route: 047
     Dates: start: 20140121
  10. OPTIVE [Concomitant]
     Indication: EYE INFLAMMATION
     Route: 065
     Dates: start: 20140121

REACTIONS (1)
  - Scleral disorder [Recovered/Resolved]
